FAERS Safety Report 13695968 (Version 1)
Quarter: 2017Q2

REPORT INFORMATION
  Report Type: Spontaneous
  Country: US (occurrence: US)
  Receive Date: 20170628
  Receipt Date: 20170628
  Transmission Date: 20170830
  Serious: Yes (Other)
  Sender: FDA-Public Use
  Company Number: US-BAXTER-2017BAX025590

PATIENT
  Age: 8 Year
  Sex: Male

DRUGS (18)
  1. VINCRISTINE [Suspect]
     Active Substance: VINCRISTINE
     Indication: B PRECURSOR TYPE ACUTE LEUKAEMIA
     Dosage: INDUCTION CHEMOTHERAPY
     Route: 065
  2. VINCRISTINE [Suspect]
     Active Substance: VINCRISTINE
     Dosage: REINDUCTION CHEMOTHERAPY
     Route: 065
  3. ERWINIA ASPARAGINASE [Suspect]
     Active Substance: ASPARAGINASE ERWINIA CHRYSANTHEMI
     Indication: PRODUCT USED FOR UNKNOWN INDICATION
     Route: 065
  4. PEG/L-ASPARAGINASE [Suspect]
     Active Substance: PEGASPARGASE
     Dosage: REINDUCTION CHEMOTHERAPY
     Route: 065
  5. METHOTREXATE. [Suspect]
     Active Substance: METHOTREXATE
     Indication: NEOPLASM RECURRENCE
  6. DAUNORUBICIN [Suspect]
     Active Substance: DAUNORUBICIN
     Indication: B PRECURSOR TYPE ACUTE LEUKAEMIA
     Dosage: INDUCTION CHEMOTHERAPY
     Route: 065
  7. DAUNORUBICIN [Suspect]
     Active Substance: DAUNORUBICIN
     Dosage: REINDUCTION CHEMOTHERAPY
     Route: 065
  8. DASATINIB [Suspect]
     Active Substance: DASATINIB
     Indication: B PRECURSOR TYPE ACUTE LEUKAEMIA
     Route: 065
  9. METHOTREXATE. [Suspect]
     Active Substance: METHOTREXATE
     Indication: CENTRAL NERVOUS SYSTEM NEOPLASM
     Route: 037
  10. DEXAMETHASONE. [Suspect]
     Active Substance: DEXAMETHASONE
     Dosage: REINDUCTION CHEMOTHERAPY
     Route: 065
  11. PEG/L-ASPARAGINASE [Suspect]
     Active Substance: PEGASPARGASE
     Indication: B PRECURSOR TYPE ACUTE LEUKAEMIA
     Dosage: INDUCTION CHEMOTHERAPY
     Route: 065
  12. RITUXIMAB [Suspect]
     Active Substance: RITUXIMAB
     Indication: B PRECURSOR TYPE ACUTE LEUKAEMIA
     Route: 065
  13. CYTARABINE. [Suspect]
     Active Substance: CYTARABINE
     Indication: PRODUCT USED FOR UNKNOWN INDICATION
     Dosage: HIGH DOSE
     Route: 065
  14. METHOTREXATE. [Suspect]
     Active Substance: METHOTREXATE
     Indication: PROPHYLAXIS AGAINST GRAFT VERSUS HOST DISEASE
     Route: 065
  15. PONATINIB [Suspect]
     Active Substance: PONATINIB
     Indication: PRODUCT USED FOR UNKNOWN INDICATION
     Route: 065
  16. CYCLOSPORINE. [Suspect]
     Active Substance: CYCLOSPORINE
     Indication: PROPHYLAXIS AGAINST GRAFT VERSUS HOST DISEASE
     Route: 065
  17. CYCLOPHOSPHAMIDE FOR INJECTION, USP [Suspect]
     Active Substance: CYCLOPHOSPHAMIDE
     Indication: PROPHYLAXIS AGAINST GRAFT VERSUS HOST DISEASE
     Dosage: CONDITIONING REGIMEN
     Route: 065
  18. DEXAMETHASONE. [Suspect]
     Active Substance: DEXAMETHASONE
     Indication: B PRECURSOR TYPE ACUTE LEUKAEMIA
     Dosage: INDUCTION CHEMOTHERAPY
     Route: 065

REACTIONS (7)
  - Neoplasm recurrence [Unknown]
  - Bacteraemia [Unknown]
  - Plasma cell myeloma recurrent [Unknown]
  - Disease complication [Unknown]
  - Infection [Unknown]
  - Central nervous system neoplasm [Unknown]
  - Systemic candida [Unknown]
